FAERS Safety Report 24292772 (Version 1)
Quarter: 2024Q3

REPORT INFORMATION
  Report Type: Spontaneous
  Country: US (occurrence: None)
  Receive Date: 20240906
  Receipt Date: 20240906
  Transmission Date: 20241016
  Serious: No
  Sender: DOMPE FARMACEUTICI
  Company Number: US-FARMAPROD-202310-3089

PATIENT
  Sex: Female

DRUGS (6)
  1. OXERVATE [Suspect]
     Active Substance: CENEGERMIN-BKBJ
     Indication: Neurotrophic keratopathy
     Route: 047
     Dates: start: 20230921
  2. OXERVATE [Suspect]
     Active Substance: CENEGERMIN-BKBJ
  3. ARTIFICIAL TEARS [Concomitant]
  4. METFORMIN HYDROCHLORIDE [Concomitant]
     Active Substance: METFORMIN HYDROCHLORIDE
  5. LEVOTHYROXINE SODIUM [Concomitant]
     Active Substance: LEVOTHYROXINE SODIUM
  6. TELMISARTAN [Concomitant]
     Active Substance: TELMISARTAN

REACTIONS (9)
  - Weight decreased [Unknown]
  - Product dose omission issue [Unknown]
  - Asthenopia [Unknown]
  - Asthenopia [Unknown]
  - Eyelid ptosis [Unknown]
  - Eye pain [Unknown]
  - Photophobia [Unknown]
  - Eye swelling [Unknown]
  - Swelling of eyelid [Unknown]
